FAERS Safety Report 4284340-5 (Version None)
Quarter: 2004Q1

REPORT INFORMATION
  Report Type: 
  Country: None (occurrence: None)
  Receive Date: 20040130
  Receipt Date: 20040108
  Transmission Date: 20041129
  Serious: Yes (Other)
  Sender: FDA-Public Use
  Company Number: US_040199836

PATIENT
  Age: 53 Year
  Sex: Male
  Weight: 114 kg

DRUGS (3)
  1. HUMULIN 70/30 [Suspect]
     Indication: DIABETES MELLITUS
     Dates: start: 19950101
  2. HUMULIN-HUMAN INSULIN (RDNA) : 25% LISPRO, 75% NPL [Suspect]
     Indication: DIABETES MELLITUS
     Dosage: 45 U/2 DAY
     Dates: start: 20020101
  3. INSULIN GLARGINE [Concomitant]

REACTIONS (11)
  - ARTERIAL OCCLUSIVE DISEASE [None]
  - ARTERIOPATHIC DISEASE [None]
  - BLOOD GLUCOSE FLUCTUATION [None]
  - DRUG EFFECT DECREASED [None]
  - FLUSHING [None]
  - PAIN [None]
  - PAIN OF SKIN [None]
  - PARAESTHESIA [None]
  - PRURITUS [None]
  - RASH [None]
  - SKIN BURNING SENSATION [None]
